FAERS Safety Report 8045362-1 (Version None)
Quarter: 2012Q1

REPORT INFORMATION
  Report Type: 
  Country: None (occurrence: None)
  Receive Date: 20120113
  Receipt Date: 20120104
  Transmission Date: 20120608
  Serious: Yes (Hospitalization)
  Sender: FDA-Public Use
  Company Number: US-BAYER-2011-064175

PATIENT
  Age: 16 Year
  Sex: Female
  Weight: 65.76 kg

DRUGS (4)
  1. DROSPIRENONE AND ETHINYL ESTRADIOL [Suspect]
     Indication: ACNE
  2. DROSPIRENONE AND ETHINYL ESTRADIOL [Suspect]
     Indication: PREMENSTRUAL SYNDROME
     Dosage: UNK
     Route: 048
     Dates: start: 20091221, end: 20100215
  3. AZITHROMYCIN [Concomitant]
     Indication: BRONCHITIS
     Dosage: UNK
     Route: 048
     Dates: start: 20100129, end: 20100202
  4. FLOVENT [Concomitant]
     Indication: BRONCHITIS
     Dosage: UNK
     Dates: start: 20100129, end: 20100201

REACTIONS (7)
  - INJURY [None]
  - FEAR [None]
  - ANXIETY [None]
  - EMOTIONAL DISTRESS [None]
  - DYSPNOEA [None]
  - NON-CARDIAC CHEST PAIN [None]
  - PULMONARY EMBOLISM [None]
